FAERS Safety Report 25567736 (Version 1)
Quarter: 2025Q3

REPORT INFORMATION
  Report Type: Spontaneous
  Country: CA (occurrence: CA)
  Receive Date: 20250716
  Receipt Date: 20250716
  Transmission Date: 20251021
  Serious: Yes (Death, Hospitalization)
  Sender: FRESENIUS KABI
  Company Number: CA-FreseniusKabi-FK202509517

PATIENT
  Age: 39 Year
  Sex: Male

DRUGS (1)
  1. BLEOMYCIN SULFATE [Suspect]
     Active Substance: BLEOMYCIN SULFATE
     Indication: Testicular cancer metastatic

REACTIONS (7)
  - Acute kidney injury [Fatal]
  - Ischaemic hepatitis [Fatal]
  - Pneumomediastinum [Fatal]
  - Pneumonitis [Fatal]
  - Pneumothorax [Fatal]
  - Respiratory failure [Fatal]
  - Right ventricular dysfunction [Fatal]
